FAERS Safety Report 7565587-9 (Version None)
Quarter: 2011Q2

REPORT INFORMATION
  Report Type: 
  Country: None (occurrence: None)
  Receive Date: 20110615
  Receipt Date: 20110606
  Transmission Date: 20111010
  Serious: Yes (Other)
  Sender: FDA-Public Use
  Company Number: 2011SP016675

PATIENT
  Age: 20 Year
  Sex: Male
  Weight: 67 kg

DRUGS (4)
  1. CITALOPRAM HYDROBROMIDE [Concomitant]
  2. MIRTAZAPINE [Suspect]
     Indication: DEPRESSION
     Dosage: 30 MG; PO
     Route: 048
     Dates: start: 20110225, end: 20110325
  3. DIAZEPAM [Concomitant]
  4. AMOXICILLIN [Concomitant]

REACTIONS (2)
  - ANGER [None]
  - CONDITION AGGRAVATED [None]
